FAERS Safety Report 7655097-2 (Version None)
Quarter: 2011Q3

REPORT INFORMATION
  Report Type: 
  Country: None (occurrence: None)
  Receive Date: 20110804
  Receipt Date: 20110726
  Transmission Date: 20111222
  Serious: Yes (Other)
  Sender: FDA-Public Use
  Company Number: US-JNJFOC-20110711320

PATIENT
  Age: 46 Year
  Sex: Female

DRUGS (10)
  1. REMICADE [Suspect]
     Dosage: 2ND DOSE
     Route: 042
     Dates: start: 20110701
  2. MESALAMINE [Concomitant]
  3. PREDNISONE [Concomitant]
  4. NUVARING [Concomitant]
  5. SYNTHROID [Concomitant]
  6. BUPROPION HCL [Concomitant]
  7. REMICADE [Suspect]
     Indication: COLITIS ULCERATIVE
     Route: 042
     Dates: start: 20110701
  8. REMICADE [Suspect]
     Indication: PSORIATIC ARTHROPATHY
     Route: 042
     Dates: start: 20110701
  9. REMICADE [Suspect]
     Dosage: 2ND DOSE
     Route: 042
     Dates: start: 20110701
  10. CITALOPRAM [Concomitant]

REACTIONS (3)
  - DEEP VEIN THROMBOSIS [None]
  - PULMONARY EMBOLISM [None]
  - THROMBOPHLEBITIS [None]
